FAERS Safety Report 6601409-8 (Version None)
Quarter: 2010Q1

REPORT INFORMATION
  Report Type: 
  Country: None (occurrence: None)
  Receive Date: 20100224
  Receipt Date: 20100224
  Transmission Date: 20100710
  Serious: Yes (Hospitalization)
  Sender: FDA-Public Use
  Company Number: None

PATIENT
  Sex: Female
  Weight: 58.6 kg

DRUGS (1)
  1. OXALAPLATIN [Suspect]

REACTIONS (4)
  - CONSTIPATION [None]
  - GASTROENTERITIS [None]
  - LARGE INTESTINAL ULCER [None]
  - NEUROPATHY PERIPHERAL [None]
